FAERS Safety Report 10524842 (Version 1)
Quarter: 2014Q4

REPORT INFORMATION
  Report Type: Spontaneous
  Country: US (occurrence: US)
  Receive Date: 20141017
  Receipt Date: 20141017
  Transmission Date: 20150528
  Serious: No
  Sender: FDA-Public Use
  Company Number: US-B.I. PHARMACEUTICALS,INC./RIDGEFIELD-2014-BI-47875BP

PATIENT
  Age: 63 Year
  Sex: Female
  Weight: 63.5 kg

DRUGS (3)
  1. METFORMIN [Concomitant]
     Active Substance: METFORMIN HYDROCHLORIDE
     Indication: TYPE 2 DIABETES MELLITUS
     Dosage: 1000 MG
     Route: 048
     Dates: start: 2004
  2. AGGRENOX [Suspect]
     Active Substance: ASPIRIN\DIPYRIDAMOLE
     Indication: CEREBROVASCULAR ACCIDENT PROPHYLAXIS
     Dosage: DOSE PER APPLICATION: 25 MG / 200 MG; DAILY DOSE: 50 MG / 400 MG
     Route: 048
     Dates: start: 2007
  3. BENAZEPRIL [Concomitant]
     Active Substance: BENAZEPRIL\BENAZEPRIL HYDROCHLORIDE
     Indication: HYPERTENSION
     Dosage: 20 MG
     Route: 048
     Dates: start: 2004

REACTIONS (10)
  - Liver function test abnormal [Not Recovered/Not Resolved]
  - Blood cholesterol increased [Not Recovered/Not Resolved]
  - Contusion [Not Recovered/Not Resolved]
  - Flushing [Not Recovered/Not Resolved]
  - Alopecia [Not Recovered/Not Resolved]
  - Myalgia [Not Recovered/Not Resolved]
  - Agitation [Not Recovered/Not Resolved]
  - Rash [Not Recovered/Not Resolved]
  - Renal function test abnormal [Not Recovered/Not Resolved]
  - Fatigue [Not Recovered/Not Resolved]

NARRATIVE: CASE EVENT DATE: 201404
